FAERS Safety Report 5650843-1 (Version None)
Quarter: 2008Q1

REPORT INFORMATION
  Report Type: 
  Country: None (occurrence: None)
  Receive Date: 20080304
  Receipt Date: 20080304
  Transmission Date: 20080703
  Serious: Yes (Life-Threatening)
  Sender: FDA-Public Use
  Company Number: None

PATIENT
  Age: 46 Year
  Sex: Female

DRUGS (1)
  1. VISIPAQUE [Suspect]
     Indication: COMPUTERISED TOMOGRAM
     Dosage: 1 DOSE

REACTIONS (3)
  - DYSPHAGIA [None]
  - DYSPNOEA [None]
  - THROAT TIGHTNESS [None]
